FAERS Safety Report 6400415-6 (Version None)
Quarter: 2009Q4

REPORT INFORMATION
  Report Type: 
  Country: None (occurrence: None)
  Receive Date: 20091007
  Receipt Date: 20091007
  Transmission Date: 20100525
  Serious: Yes (Other)
  Sender: FDA-Public Use
  Company Number: None

PATIENT
  Sex: Female
  Weight: 67.586 kg

DRUGS (2)
  1. AVELOX [Suspect]
     Indication: DIVERTICULITIS
     Dosage: 1 TABLET DAILY PO
     Route: 048
     Dates: start: 20090728, end: 20090828
  2. CEPHALEXIN [Suspect]
     Indication: CELLULITIS
     Dosage: 1 CAPSULE
     Dates: start: 20090903, end: 20090909

REACTIONS (3)
  - ERYTHEMA NODOSUM [None]
  - MYALGIA [None]
  - TENDON PAIN [None]
